FAERS Safety Report 5696855-3 (Version None)
Quarter: 2008Q2

REPORT INFORMATION
  Report Type: 
  Country: None (occurrence: None)
  Receive Date: 20080408
  Receipt Date: 20061215
  Transmission Date: 20081010
  Serious: No
  Sender: FDA-Public Use
  Company Number: US-BAYER-US-2006-039651

PATIENT
  Age: 33 Year
  Sex: Female
  Weight: 72 kg

DRUGS (4)
  1. YASMIN [Suspect]
     Indication: MENSTRUATION IRREGULAR
  2. CLARITIN [Concomitant]
  3. PRILOSEC [Concomitant]
  4. ALEVE [Concomitant]

REACTIONS (2)
  - INAPPROPRIATE SCHEDULE OF DRUG ADMINISTRATION [None]
  - VAGINAL HAEMORRHAGE [None]
